FAERS Safety Report 18470736 (Version 4)
Quarter: 2021Q1

REPORT INFORMATION
  Report Type: Other
  Country: FR (occurrence: FR)
  Receive Date: 20201105
  Receipt Date: 20210127
  Transmission Date: 20210419
  Serious: Yes (Other)
  Sender: FDA-Public Use
  Company Number: FR-ROCHE-2678116

PATIENT
  Age: 47 Year
  Sex: Male
  Weight: 55.2 kg

DRUGS (3)
  1. PARACETAMOL [Concomitant]
     Active Substance: ACETAMINOPHEN
     Indication: TENDON PAIN
     Dates: start: 20191003, end: 20201009
  2. ATEZOLIZUMAB. [Suspect]
     Active Substance: ATEZOLIZUMAB
     Indication: NON-SMALL CELL LUNG CANCER
     Dosage: SUBSEQUENT DOSE OF ATEZOLIZUMAB RECEIVED ON 20/JUN/2019, 11/JUL/2019, 01/AUG/2019, 21/AUG/2019, 12/S
     Route: 041
     Dates: start: 20190529
  3. VOLTARENE [Concomitant]
     Indication: TENDON PAIN
     Dates: start: 20191003, end: 20201009

REACTIONS (2)
  - Bronchitis [Recovered/Resolved]
  - Polyarthritis [Recovered/Resolved]

NARRATIVE: CASE EVENT DATE: 20191101
